FAERS Safety Report 19092128 (Version 3)
Quarter: 2022Q3

REPORT INFORMATION
  Report Type: Spontaneous
  Country: JP (occurrence: JP)
  Receive Date: 20210405
  Receipt Date: 20220713
  Transmission Date: 20221027
  Serious: Yes (Death, Other)
  Sender: FDA-Public Use
  Company Number: JP-GSKNCCC-CASE-01086668_AE-37006

PATIENT

DRUGS (3)
  1. ATOVAQUONE [Suspect]
     Active Substance: ATOVAQUONE
     Indication: Antifungal prophylaxis
     Dosage: UNK
     Route: 048
     Dates: start: 202011, end: 20210310
  2. ATOVAQUONE [Suspect]
     Active Substance: ATOVAQUONE
     Dosage: UNK ?????????????
     Route: 050
     Dates: start: 20210311, end: 2021
  3. SULFAMETHOXAZOLE\TRIMETHOPRIM [Concomitant]
     Active Substance: SULFAMETHOXAZOLE\TRIMETHOPRIM
     Indication: Antifungal prophylaxis
     Dosage: UNK
     Route: 048
     Dates: end: 202011

REACTIONS (7)
  - General physical health deterioration [Fatal]
  - Brain neoplasm [Unknown]
  - Disease progression [Unknown]
  - Terminal state [Unknown]
  - Vomiting [Recovered/Resolved]
  - Product use issue [Unknown]
  - Off label use [Unknown]

NARRATIVE: CASE EVENT DATE: 20201101
